FAERS Safety Report 26017686 (Version 1)
Quarter: 2025Q4

REPORT INFORMATION
  Report Type: Spontaneous
  Country: US (occurrence: US)
  Receive Date: 20251110
  Receipt Date: 20251110
  Transmission Date: 20260118
  Serious: No
  Sender: ROCHE
  Company Number: US-ROCHE-10000424015

PATIENT
  Sex: Female

DRUGS (1)
  1. ACTEMRA ACTPEN [Suspect]
     Active Substance: TOCILIZUMAB
     Indication: Rheumatoid arthritis
     Dosage: STRENGTH: 162MG/0.9M?DOSE: 1 PEN
     Route: 058
     Dates: start: 20250828

REACTIONS (4)
  - Eczema [Unknown]
  - Stomatitis [Recovered/Resolved]
  - Dermatitis [Unknown]
  - Arthropathy [Unknown]
